FAERS Safety Report 17892299 (Version 1)
Quarter: 2020Q2

REPORT INFORMATION
  Report Type: Spontaneous
  Country: US (occurrence: US)
  Receive Date: 20200613
  Receipt Date: 20200613
  Transmission Date: 20200714
  Serious: Yes (Hospitalization, Other)
  Sender: FDA-Public Use
  Company Number: US-AUROBINDO-AUR-APL-2020-028567

PATIENT
  Age: 47 Year
  Sex: Male

DRUGS (9)
  1. ZIPRASIDONE. [Concomitant]
     Active Substance: ZIPRASIDONE
     Indication: AGITATION
     Route: 065
  2. LORAZEPAM. [Concomitant]
     Active Substance: LORAZEPAM
     Indication: AGITATION
     Route: 065
  3. LORAZEPAM. [Concomitant]
     Active Substance: LORAZEPAM
     Indication: RESTLESSNESS
  4. METOPROLOL. [Concomitant]
     Active Substance: METOPROLOL
     Indication: AGITATION
     Route: 065
  5. METOPROLOL. [Concomitant]
     Active Substance: METOPROLOL
     Indication: RESTLESSNESS
  6. VALPROIC ACID. [Concomitant]
     Active Substance: VALPROIC ACID
     Indication: AGITATION
  7. ZIPRASIDONE. [Concomitant]
     Active Substance: ZIPRASIDONE
     Indication: RESTLESSNESS
  8. METHYLPHENIDATE HYDROCHLORIDE. [Suspect]
     Active Substance: METHYLPHENIDATE HYDROCHLORIDE
     Indication: DISTURBANCE IN ATTENTION
     Route: 065
  9. VALPROIC ACID. [Concomitant]
     Active Substance: VALPROIC ACID
     Indication: RESTLESSNESS
     Route: 065

REACTIONS (4)
  - Condition aggravated [Recovering/Resolving]
  - Fall [Recovering/Resolving]
  - Attention deficit hyperactivity disorder [Recovering/Resolving]
  - Agitation [Recovering/Resolving]
